FAERS Safety Report 10197172 (Version 1)
Quarter: 2014Q2

REPORT INFORMATION
  Report Type: Spontaneous
  Country: US (occurrence: None)
  Receive Date: 20140523
  Receipt Date: 20140523
  Transmission Date: 20141212
  Serious: Yes (Hospitalization, Disabling)
  Sender: FDA-Public Use
  Company Number: None

PATIENT
  Age: 46 Year
  Sex: Male
  Weight: 88.45 kg

DRUGS (1)
  1. TRIAMCINOLONE [Suspect]
     Indication: DERMATITIS ATOPIC
     Dosage: 1 LB TUB, APPLIED TO A SURFACE, USUALLY THE SKIN

REACTIONS (11)
  - Skin disorder [None]
  - Eczema [None]
  - Skin infection [None]
  - Wound [None]
  - Skin hypertrophy [None]
  - Skin lesion [None]
  - Erythema [None]
  - Drug dependence [None]
  - Product label issue [None]
  - Skin burning sensation [None]
  - Blister [None]
